FAERS Safety Report 8095533-3 (Version None)
Quarter: 2012Q1

REPORT INFORMATION
  Report Type: 
  Country: None (occurrence: None)
  Receive Date: 20120129
  Receipt Date: 20111229
  Transmission Date: 20120608
  Serious: No
  Sender: FDA-Public Use
  Company Number: US-ABBOTT-11P-163-0887733-00

PATIENT
  Age: 75 Year
  Sex: Male

DRUGS (5)
  1. FLOMAX [Concomitant]
     Indication: PRODUCT USED FOR UNKNOWN INDICATION
  2. HUMIRA [Suspect]
     Indication: RHEUMATOID ARTHRITIS
     Dates: start: 20111201
  3. FOLIC ACID [Concomitant]
     Indication: PRODUCT USED FOR UNKNOWN INDICATION
  4. ITCHY PILL [Concomitant]
     Indication: PRODUCT USED FOR UNKNOWN INDICATION
  5. PENICILLIN [Concomitant]
     Indication: CELLULITIS

REACTIONS (4)
  - PAIN IN EXTREMITY [None]
  - MUSCULOSKELETAL STIFFNESS [None]
  - DRUG INEFFECTIVE [None]
  - ARTHRALGIA [None]
